FAERS Safety Report 5689522-3 (Version None)
Quarter: 2008Q1

REPORT INFORMATION
  Report Type: 
  Country: None (occurrence: None)
  Receive Date: 20080331
  Receipt Date: 20080319
  Transmission Date: 20080703
  Serious: Yes (Death, Other)
  Sender: FDA-Public Use
  Company Number: FR-PFIZER INC-2008026129

PATIENT
  Sex: Male

DRUGS (1)
  1. VFEND [Suspect]
     Indication: CANDIDIASIS

REACTIONS (2)
  - CHOLESTASIS [None]
  - DEATH [None]
